FAERS Safety Report 9759676 (Version 2)
Quarter: 2013Q4

REPORT INFORMATION
  Report Type: Spontaneous
  Country: None (occurrence: US)
  Receive Date: 20131216
  Receipt Date: 20131216
  Transmission Date: 20140711
  Serious: No
  Sender: FDA-Public Use
  Company Number: US-GILEAD-2010-0028465

PATIENT
  Sex: Female
  Weight: 81.65 kg

DRUGS (20)
  1. LETAIRIS [Suspect]
     Indication: PULMONARY ARTERIAL HYPERTENSION
     Route: 048
     Dates: start: 20080819
  2. FUROSEMIDE [Concomitant]
  3. ALVESCO [Concomitant]
  4. POTASSIUM CHLORIDE [Concomitant]
  5. VERAMYST [Concomitant]
  6. ALBUTEROL [Concomitant]
  7. ALLEGRA [Concomitant]
  8. CLARITIN [Concomitant]
  9. BENADRYL [Concomitant]
  10. TYLENOL [Concomitant]
  11. FLONASE [Concomitant]
  12. ZOLOFT [Concomitant]
  13. BUSPAR [Concomitant]
  14. COENZYME [Concomitant]
  15. L-ARGININE [Concomitant]
  16. ASPIRIN [Concomitant]
  17. FLAX SEED [Concomitant]
  18. HYDROCHLOROTHIAZIDE [Concomitant]
  19. OMEGA 3 [Concomitant]
  20. MULTIVITAMIN [Concomitant]

REACTIONS (2)
  - Asthma [Unknown]
  - Pericardial neoplasm [Unknown]
